FAERS Safety Report 8281312-0 (Version None)
Quarter: 2012Q2

REPORT INFORMATION
  Report Type: 
  Country: None (occurrence: None)
  Receive Date: 20120413
  Receipt Date: 20120403
  Transmission Date: 20120825
  Serious: No
  Sender: FDA-Public Use
  Company Number: US-PFIZER INC-2012088224

PATIENT
  Sex: Female
  Weight: 125 kg

DRUGS (5)
  1. NEURONTIN [Suspect]
     Indication: OFF LABEL USE
  2. SOMA [Concomitant]
     Dosage: UNK
  3. NEURONTIN [Suspect]
     Indication: RESTLESS LEGS SYNDROME
     Dosage: 300 MG IN MORNING AND IN THE AFTERNOON AND TWO 300MG AT NIGHT
     Route: 048
     Dates: start: 20100101
  4. HYDROCODONE [Concomitant]
     Dosage: UNK
  5. NAPROXEN (ALEVE) [Concomitant]
     Dosage: UNK

REACTIONS (1)
  - RESTLESS LEGS SYNDROME [None]
